FAERS Safety Report 19662758 (Version 1)
Quarter: 2021Q3

REPORT INFORMATION
  Report Type: Spontaneous
  Country: US (occurrence: US)
  Receive Date: 20210805
  Receipt Date: 20210805
  Transmission Date: 20211014
  Serious: Yes (Hospitalization, Other)
  Sender: FDA-Public Use
  Company Number: US-PARI RESPIRATORY EQUIPMENT, INC.-2021PAR00042

PATIENT
  Sex: Female
  Weight: 63.18 kg

DRUGS (15)
  1. KITABIS PAK [Suspect]
     Active Substance: TOBRAMYCIN
     Indication: LUNG DISORDER
  2. PULMOZYME [Concomitant]
     Active Substance: DORNASE ALFA
  3. PULMOZYME [Concomitant]
     Active Substance: DORNASE ALFA
  4. MVW COMPLETE FORMULATION PEDIATRIC [Concomitant]
  5. ZYRTEC [Concomitant]
     Active Substance: CETIRIZINE HYDROCHLORIDE
  6. ALBUTEROL SULFATE. [Concomitant]
     Active Substance: ALBUTEROL SULFATE
  7. SEREVENT DISKUS SPRAY [Concomitant]
  8. CREON [Concomitant]
     Active Substance: PANCRELIPASE AMYLASE\PANCRELIPASE LIPASE\PANCRELIPASE PROTEASE
  9. TRIKAFTA SEQ [Concomitant]
  10. KITABIS PAK [Suspect]
     Active Substance: TOBRAMYCIN
     Indication: CYSTIC FIBROSIS
     Dosage: 300 MG (5 ML) BY NEBULIZER, 2X/DAY (EVERY 12 HOURS) FOR 28 DAYS ON AND 28 DAYS OFF
  11. TOBI  NEB [Concomitant]
  12. AZITHROMYCIN ANHYDROUS. [Concomitant]
     Active Substance: AZITHROMYCIN ANHYDROUS
  13. TRAZODONE HYDROCHLORIDE. [Concomitant]
     Active Substance: TRAZODONE HYDROCHLORIDE
  14. PRISTIQ ER 24HR [Concomitant]
  15. SODIUM CHLORIDE 7% VIAL?NEB [Concomitant]

REACTIONS (2)
  - Pneumonia [Unknown]
  - Hospitalisation [Unknown]
